FAERS Safety Report 8121087-9 (Version None)
Quarter: 2012Q1

REPORT INFORMATION
  Report Type: 
  Country: None (occurrence: None)
  Receive Date: 20120208
  Receipt Date: 20120130
  Transmission Date: 20120608
  Serious: Yes (Other)
  Sender: FDA-Public Use
  Company Number: US-JNJFOC-20120113527

PATIENT
  Sex: Male
  Weight: 90.72 kg

DRUGS (6)
  1. REMICADE [Suspect]
     Indication: PSORIATIC ARTHROPATHY
     Dosage: ^LOWER DOSE^
     Route: 042
     Dates: start: 20110101, end: 20110101
  2. OXYCODONE HCL [Concomitant]
     Indication: PAIN
     Dosage: DOSE 10/325 MG PER TABLET
     Route: 048
  3. FENTANYL CITRATE [Concomitant]
     Indication: PAIN
     Route: 062
     Dates: start: 20090101
  4. CARISOPRODOL [Concomitant]
     Indication: MUSCLE RELAXANT THERAPY
     Dosage: DOSE: 2-3 TIMES A DAY
     Route: 048
  5. STEROIDS NOS [Concomitant]
     Indication: PSORIATIC ARTHROPATHY
     Dosage: DOSE: AS NEEDED
     Route: 048
  6. REMICADE [Suspect]
     Dosage: ^STANDARD DOSE^
     Route: 042
     Dates: start: 20110101, end: 20110101

REACTIONS (6)
  - HAEMORRHAGE [None]
  - FEELING ABNORMAL [None]
  - THERAPEUTIC RESPONSE DECREASED [None]
  - MALAISE [None]
  - HAEMATURIA [None]
  - DISCOMFORT [None]
